FAERS Safety Report 9816472 (Version 1)
Quarter: 2014Q1

REPORT INFORMATION
  Report Type: Spontaneous
  Country: US (occurrence: US)
  Receive Date: 20140114
  Receipt Date: 20140114
  Transmission Date: 20141002
  Serious: Yes (Other)
  Sender: FDA-Public Use
  Company Number: US-PFIZER INC-2014008330

PATIENT
  Age: 63 Year
  Sex: Male
  Weight: 104.76 kg

DRUGS (5)
  1. LYRICA [Suspect]
     Indication: DIABETIC NEUROPATHY
     Dosage: 75 MG, 3X/DAY
     Route: 048
  2. LYRICA [Suspect]
     Dosage: 75 MG, 3X/DAY
     Route: 048
  3. METFORMIN [Concomitant]
     Indication: DIABETES MELLITUS
     Dosage: 500 MG, 1X/DAY
  4. LEVEMIR [Concomitant]
     Dosage: 30 UNITS, 1X/DAY
  5. ZOCOR [Concomitant]
     Dosage: 10 MG, 1X/DAY

REACTIONS (2)
  - Lung neoplasm malignant [Unknown]
  - White blood cell count decreased [Unknown]
